FAERS Safety Report 20372135 (Version 4)
Quarter: 2022Q4

REPORT INFORMATION
  Report Type: Spontaneous
  Country: JP (occurrence: JP)
  Receive Date: 20220124
  Receipt Date: 20221208
  Transmission Date: 20230112
  Serious: Yes (Hospitalization, Other)
  Sender: FDA-Public Use
  Company Number: JP-ELI_LILLY_AND_COMPANY-JP202104001643

PATIENT
  Age: 64 Year
  Sex: Female

DRUGS (6)
  1. ADCIRCA [Suspect]
     Active Substance: TADALAFIL
     Indication: Pulmonary arterial hypertension
     Dosage: UNK UNK, UNKNOWN
     Route: 065
  2. UPTRAVI [Suspect]
     Active Substance: SELEXIPAG
     Indication: Pulmonary arterial hypertension
     Dosage: 1.2 MG, DAILY
     Route: 048
     Dates: start: 20210216
  3. UPTRAVI [Suspect]
     Active Substance: SELEXIPAG
     Dosage: 1.6 MG, DAILY
     Route: 048
     Dates: start: 20210401
  4. UPTRAVI [Suspect]
     Active Substance: SELEXIPAG
     Dosage: 2 MG, DAILY
     Route: 048
  5. OPSUMIT [Concomitant]
     Active Substance: MACITENTAN
     Indication: Pulmonary arterial hypertension
     Dosage: UNK UNK, UNKNOWN
     Route: 065
  6. OFEV [Concomitant]
     Active Substance: NINTEDANIB
     Indication: Product used for unknown indication
     Dosage: UNK, UNKNOWN
     Route: 065

REACTIONS (3)
  - Scleroderma associated digital ulcer [Recovering/Resolving]
  - Deafness [Recovered/Resolved]
  - Dizziness [Recovered/Resolved]

NARRATIVE: CASE EVENT DATE: 20210316
